FAERS Safety Report 9049568 (Version 1)
Quarter: 2013Q1

REPORT INFORMATION
  Report Type: Spontaneous
  Country: US (occurrence: US)
  Receive Date: 20130205
  Receipt Date: 20130205
  Transmission Date: 20140127
  Serious: No
  Sender: FDA-Public Use
  Company Number: US-PFIZER INC-2013041015

PATIENT
  Age: 35 Year
  Sex: Female
  Weight: 227 kg

DRUGS (14)
  1. CELEBREX [Suspect]
     Indication: ARTHRITIS
     Dosage: 200 MG, DAILY
  2. DETROL LA [Suspect]
     Indication: URINARY INCONTINENCE
     Dosage: 4 MG, DAILY
  3. DOCUSATE SODIUM [Concomitant]
     Indication: FAECES HARD
     Dosage: 100 MG, DAILY
  4. PRILOSEC [Concomitant]
     Indication: DYSPEPSIA
     Dosage: 20 MG, DAILY
  5. ZESTRIL [Concomitant]
     Indication: HYPERTENSION
     Dosage: 20 MG, DAILY
  6. TOPAMAX [Concomitant]
     Indication: NERVOUS SYSTEM DISORDER
     Dosage: 200 MG, DAILY
  7. CYMBALTA [Concomitant]
     Indication: NERVOUS SYSTEM DISORDER
     Dosage: 60 MG, 2X/DAY
  8. CYMBALTA [Concomitant]
     Indication: DEPRESSION
  9. FLEXERIL [Concomitant]
     Indication: MUSCLE SPASMS
     Dosage: 10 MG, EVERY 12 HOURS
  10. TRAMADOL [Concomitant]
     Indication: PAIN
     Dosage: 50 MG, 2X/DAY
  11. CITRACAL D3 [Concomitant]
     Indication: VITAMIN D DEFICIENCY
     Dosage: UNK, DAILY
  12. VITAMIN D3 [Concomitant]
     Indication: VITAMIN D DEFICIENCY
     Dosage: 2000 IU, DAILY
  13. LASIX [Concomitant]
     Indication: FLUID RETENTION
     Dosage: 80 MG, DAILY
  14. K-DUR [Concomitant]
     Indication: BLOOD POTASSIUM ABNORMAL
     Dosage: 20 MG, DAILY

REACTIONS (1)
  - Tooth loss [Unknown]
